FAERS Safety Report 18050328 (Version 3)
Quarter: 2021Q2

REPORT INFORMATION
  Report Type: Report from Study
  Country: CA (occurrence: CA)
  Receive Date: 20200721
  Receipt Date: 20210623
  Transmission Date: 20210717
  Serious: Yes (Other)
  Sender: FDA-Public Use
  Company Number: PHHY2019CA167163

PATIENT
  Age: 74 Year
  Sex: Male
  Weight: 97 kg

DRUGS (3)
  1. SANDOSTATIN LAR DEPOT [Suspect]
     Active Substance: OCTREOTIDE ACETATE
     Indication: CARCINOID TUMOUR
     Dosage: 30 MG, Q4W (EVERY FOUR WEEKS)
     Route: 030
     Dates: start: 20190715
  2. SANDOSTATIN LAR DEPOT [Suspect]
     Active Substance: OCTREOTIDE ACETATE
     Dosage: UNK
     Route: 030
     Dates: start: 20191104
  3. SANDOSTATIN LAR DEPOT [Suspect]
     Active Substance: OCTREOTIDE ACETATE

REACTIONS (9)
  - Second primary malignancy [Unknown]
  - Heart rate decreased [Unknown]
  - Nausea [Unknown]
  - Vomiting [Unknown]
  - Abdominal pain [Unknown]
  - Blood pressure increased [Unknown]
  - Weight decreased [Unknown]
  - Hyperglycaemia [Unknown]
  - Spindle cell sarcoma [Unknown]

NARRATIVE: CASE EVENT DATE: 2019
